FAERS Safety Report 5339674-X (Version None)
Quarter: 2007Q2

REPORT INFORMATION
  Report Type: 
  Country: None (occurrence: None)
  Receive Date: 20070525
  Receipt Date: 20070516
  Transmission Date: 20071010
  Serious: Yes (Disabling, Other)
  Sender: FDA-Public Use
  Company Number: 16553

PATIENT
  Age: 65 Year
  Sex: Female

DRUGS (15)
  1. CYTARABINE [Suspect]
     Indication: ACUTE LYMPHOCYTIC LEUKAEMIA
     Dosage: 3 G/M2 BID IV
     Route: 042
  2. CYTARABINE [Suspect]
     Indication: ACUTE LYMPHOCYTIC LEUKAEMIA
  3. METHOTREXATE [Suspect]
     Indication: ACUTE LYMPHOCYTIC LEUKAEMIA
     Dosage: 1 G/M2 ONCE IV
     Route: 042
  4. METHOTREXATE [Suspect]
     Indication: ACUTE LYMPHOCYTIC LEUKAEMIA
  5. DEPOCYT [Suspect]
     Indication: ACUTE LYMPHOCYTIC LEUKAEMIA
     Dosage: 50 MG IT
     Route: 037
  6. DEPOCYT [Suspect]
     Indication: ACUTE LYMPHOCYTIC LEUKAEMIA
     Dosage: 25 MG IT
     Route: 037
  7. FRACTIONATED CYCLOPHOSPHAMIDE [Concomitant]
  8. VINCRISTINE [Concomitant]
  9. DOXORUBICIN HCL [Concomitant]
  10. DEXAMETHASONE 0.5MG TAB [Concomitant]
  11. RITUXIMAB [Concomitant]
  12. NEUPOGEN [Concomitant]
  13. ANTIBIOTICS [Concomitant]
  14. MERCAPTOPURINE [Concomitant]
  15. PREDNISONE TAB [Concomitant]

REACTIONS (6)
  - CAUDA EQUINA SYNDROME [None]
  - DECUBITUS ULCER [None]
  - DEEP VEIN THROMBOSIS [None]
  - DRUG INTERACTION [None]
  - NEUROTOXICITY [None]
  - PNEUMONIA CYTOMEGALOVIRAL [None]
